FAERS Safety Report 4294252-9 (Version None)
Quarter: 2004Q1

REPORT INFORMATION
  Report Type: 
  Country: None (occurrence: None)
  Receive Date: 20040211
  Receipt Date: 20030722
  Transmission Date: 20041129
  Serious: No
  Sender: FDA-Public Use
  Company Number: US-GLAXOSMITHKLINE-A0418597A

PATIENT
  Age: 12 Year
  Sex: Male

DRUGS (1)
  1. LAMICTAL [Suspect]
     Dosage: 75MG TWICE PER DAY
     Route: 048
     Dates: start: 20030701

REACTIONS (2)
  - AMNESIA [None]
  - ORAL PAIN [None]
